FAERS Safety Report 16961291 (Version 1)
Quarter: 2019Q4

REPORT INFORMATION
  Report Type: Spontaneous
  Country: US (occurrence: US)
  Receive Date: 20191025
  Receipt Date: 20191025
  Transmission Date: 20200122
  Serious: No
  Sender: FDA-Public Use
  Company Number: US-LEO PHARMA-325948

PATIENT
  Age: 68 Year
  Sex: Female

DRUGS (1)
  1. SKINOREN GEL [Suspect]
     Active Substance: AZELAIC ACID
     Indication: ROSACEA
     Dosage: APPLY DAILY, TOPICAL, 2 WEEKS
     Route: 061

REACTIONS (4)
  - Dry skin [Not Recovered/Not Resolved]
  - Skin exfoliation [Not Recovered/Not Resolved]
  - Inappropriate schedule of product administration [Unknown]
  - Drug ineffective [Unknown]
